FAERS Safety Report 14481506 (Version 5)
Quarter: 2019Q1

REPORT INFORMATION
  Report Type: Other
  Country: DE (occurrence: DE)
  Receive Date: 20180202
  Receipt Date: 20190320
  Transmission Date: 20190417
  Serious: Yes (Hospitalization, Other)
  Sender: FDA-Public Use
  Company Number: DE-TELIGENT, INC-IGIL20180057

PATIENT
  Age: 68 Year
  Sex: Female
  Weight: 50 kg

DRUGS (18)
  1. ZOLEDRONIC ACID [Suspect]
     Active Substance: ZOLEDRONIC ACID
     Indication: BREAST CANCER METASTATIC
     Dosage: 3.3 MG
     Route: 042
     Dates: start: 20110825, end: 20110825
  2. AVASTIN [Suspect]
     Active Substance: BEVACIZUMAB
     Indication: BREAST CANCER
     Dosage: 530 MG
     Route: 042
     Dates: start: 20110825, end: 20110825
  3. METOPROLOL. [Concomitant]
     Active Substance: METOPROLOL
     Indication: PRODUCT USED FOR UNKNOWN INDICATION
     Dosage: UNKNOWN
     Route: 065
     Dates: start: 201001
  4. DEXAMETHASONE. [Suspect]
     Active Substance: DEXAMETHASONE
     Indication: BREAST CANCER METASTATIC
     Dosage: 8 MG
     Route: 042
     Dates: start: 20110825
  5. AVASTIN [Suspect]
     Active Substance: BEVACIZUMAB
     Dosage: 530 MG
     Route: 042
     Dates: start: 20111205, end: 20111205
  6. GRANISETRON [Suspect]
     Active Substance: GRANISETRON
     Indication: BREAST CANCER METASTATIC
     Dosage: 1 MG
     Route: 042
     Dates: start: 20110825
  7. TAVEGIL [Suspect]
     Active Substance: CLEMASTINE FUMARATE
     Indication: BREAST CANCER METASTATIC
     Dosage: 2 MG
     Route: 042
     Dates: start: 20110825
  8. PACLITAXEL. [Suspect]
     Active Substance: PACLITAXEL
     Indication: BREAST CANCER METASTATIC
     Dosage: 80 MG/M2
     Route: 042
     Dates: start: 20110825, end: 20110922
  9. DENOSUMAB [Concomitant]
     Active Substance: DENOSUMAB
     Indication: PRODUCT USED FOR UNKNOWN INDICATION
     Dosage: UNKNOWN
     Route: 065
     Dates: start: 20101020
  10. ZOMETA [Concomitant]
     Active Substance: ZOLEDRONIC ACID
     Indication: PRODUCT USED FOR UNKNOWN INDICATION
     Dosage: UNKNOWN
     Route: 065
     Dates: start: 20110825, end: 20110825
  11. XELODA [Suspect]
     Active Substance: CAPECITABINE
     Dosage: 2300 MG/M2
     Route: 065
     Dates: start: 20111109, end: 20111206
  12. XELODA [Suspect]
     Active Substance: CAPECITABINE
     Dosage: 3000 MG
     Route: 065
     Dates: start: 20111019, end: 20111206
  13. RANITIDINE HYDROCHLORIDE. [Suspect]
     Active Substance: RANITIDINE HYDROCHLORIDE
     Indication: BREAST CANCER METASTATIC
     Dosage: 50 MG
     Route: 042
     Dates: start: 20110825
  14. XELODA [Suspect]
     Active Substance: CAPECITABINE
     Indication: BREAST CANCER
     Dosage: 1300 MG/M2; UNKNOWN
     Route: 065
     Dates: start: 20111206
  15. HYDROCHLOROTHIAZIDE. [Concomitant]
     Active Substance: HYDROCHLOROTHIAZIDE
     Indication: PRODUCT USED FOR UNKNOWN INDICATION
     Dosage: UNKNOWN
     Route: 065
     Dates: start: 201001
  16. IBUPROFEN. [Concomitant]
     Active Substance: IBUPROFEN
     Indication: PRODUCT USED FOR UNKNOWN INDICATION
     Dosage: UNKNOWN
     Route: 065
     Dates: start: 20110831
  17. TORSEMIDE. [Concomitant]
     Active Substance: TORSEMIDE
     Indication: PRODUCT USED FOR UNKNOWN INDICATION
     Dosage: UNKNOWN
     Route: 065
     Dates: start: 201001
  18. ARIXTRA [Concomitant]
     Active Substance: FONDAPARINUX SODIUM
     Indication: PRODUCT USED FOR UNKNOWN INDICATION
     Dosage: UNKNOWN
     Route: 065

REACTIONS (15)
  - Dyspnoea [Recovered/Resolved]
  - Mucosal inflammation [Recovered/Resolved]
  - General physical health deterioration [Recovered/Resolved]
  - Diarrhoea [Recovered/Resolved]
  - Sensory disturbance [Recovered/Resolved]
  - Venous thrombosis limb [Recovering/Resolving]
  - Vomiting [Recovered/Resolved]
  - Pulpitis dental [Recovered/Resolved]
  - Tooth erosion [Recovered/Resolved]
  - Dysphagia [Recovered/Resolved]
  - Hypertension [Recovering/Resolving]
  - Nausea [Recovered/Resolved]
  - Thrombosis [Not Recovered/Not Resolved]
  - Periodontitis [Not Recovered/Not Resolved]
  - Weight decreased [Recovered/Resolved]

NARRATIVE: CASE EVENT DATE: 20110827
